FAERS Safety Report 15378482 (Version 2)
Quarter: 2018Q3

REPORT INFORMATION
  Report Type: Spontaneous
  Country: CA (occurrence: CA)
  Receive Date: 20180913
  Receipt Date: 20180927
  Transmission Date: 20181010
  Serious: Yes (Hospitalization, Other)
  Sender: FDA-Public Use
  Company Number: CA-PFIZER INC-2018361969

PATIENT
  Age: 67 Year
  Sex: Female
  Weight: 64 kg

DRUGS (4)
  1. METHOTREXATE. [Concomitant]
     Active Substance: METHOTREXATE
     Indication: RHEUMATOID ARTHRITIS
     Dosage: 25 MG, WEEKLY
     Route: 058
     Dates: end: 20180720
  2. XELJANZ [Suspect]
     Active Substance: TOFACITINIB CITRATE
     Dosage: 5 MG, 2X/DAY
     Route: 048
     Dates: start: 201808
  3. HYDROXYCHLOROQUINE [Concomitant]
     Active Substance: HYDROXYCHLOROQUINE
     Indication: RHEUMATOID ARTHRITIS
     Dosage: 400 MG, 2X/DAY
     Route: 048
     Dates: end: 20180720
  4. FOLIC ACID. [Concomitant]
     Active Substance: FOLIC ACID
     Indication: DRUG TOXICITY PROPHYLAXIS
     Dosage: 5 MG, 6/7DAYS
     Route: 048

REACTIONS (3)
  - Bone marrow failure [Unknown]
  - Haematuria [Unknown]
  - Pancytopenia [Unknown]

NARRATIVE: CASE EVENT DATE: 201808
